FAERS Safety Report 15687381 (Version 1)
Quarter: 2018Q4

REPORT INFORMATION
  Report Type: Other
  Country: ES (occurrence: ES)
  Receive Date: 20181205
  Receipt Date: 20181205
  Transmission Date: 20190205
  Serious: Yes (Hospitalization)
  Sender: FDA-Public Use
  Company Number: ES-ALEXION PHARMACEUTICALS INC.-A201815750

PATIENT
  Age: 13 Year
  Sex: Female
  Weight: 37 kg

DRUGS (13)
  1. AMOXICILINA                        /00249603/ [Concomitant]
     Active Substance: AMOXICILLIN SODIUM
     Indication: PROPHYLAXIS
     Dosage: 500 MILIGRAM(S), 12 HOUR
     Route: 048
     Dates: start: 201701
  2. ACFOL [Concomitant]
     Active Substance: FOLIC ACID
     Indication: CHRONIC KIDNEY DISEASE
     Dosage: 5 MILIGRAM(S), 1 WEEK
     Route: 048
     Dates: start: 201701
  3. OMEPRAZOL                          /00661201/ [Concomitant]
     Active Substance: OMEPRAZOLE
     Indication: PROPHYLAXIS
     Dosage: 20 MILIGRAM(S), 24 HOUR
     Route: 048
     Dates: start: 201607
  4. POSACONAZOL [Concomitant]
     Active Substance: POSACONAZOLE
     Indication: PROPHYLAXIS
     Dosage: 300 MILIGRAM(S), 24 HOUR
     Route: 048
     Dates: start: 201607
  5. SOLIRIS [Suspect]
     Active Substance: ECULIZUMAB
     Indication: THROMBOTIC MICROANGIOPATHY
     Dosage: 1200 MILIGRAM(S) , 15 DAY
     Route: 042
     Dates: start: 20170523
  6. SEPTRIN [Concomitant]
     Active Substance: SULFAMETHOXAZOLE\TRIMETHOPRIM
     Indication: PROPHYLAXIS
     Dosage: 1 DF, 2 DAY
     Route: 048
     Dates: start: 201607
  7. HIDROCORTISONA                     /00028601/ [Concomitant]
     Active Substance: HYDROCORTISONE
     Indication: PROPHYLAXIS
     Dosage: 15 MILIGRAMS, 1 DAY
     Route: 048
     Dates: start: 201704
  8. ALOPURINOL [Concomitant]
     Active Substance: ALLOPURINOL
     Indication: CHRONIC KIDNEY DISEASE
     Dosage: 100 MG, 24 HOUR
     Route: 048
     Dates: start: 201712
  9. ARANESP [Concomitant]
     Active Substance: DARBEPOETIN ALFA
     Indication: ANAEMIA
     Dosage: 30 MICROGRAM(S), 15 DAY
     Route: 058
     Dates: start: 20170926
  10. ESPIRONOLACTONA [Concomitant]
     Active Substance: SPIRONOLACTONE
     Indication: HYPERTENSION
     Dosage: 25 MILIGRAMS (S), 12 HOUR
     Route: 048
     Dates: start: 201710
  11. DOXAZOSIN [Concomitant]
     Active Substance: DOXAZOSIN\DOXAZOSIN MESYLATE
     Indication: HYPERTENSION
     Dosage: 8 MILIGRAMS, 1 DAY
     Route: 048
     Dates: start: 201701
  12. ROCALTROL [Concomitant]
     Active Substance: CALCITRIOL
     Indication: CHRONIC KIDNEY DISEASE
     Dosage: 0.5 MICROGRAM(S), 1 DAY
     Route: 048
     Dates: start: 201705
  13. SOLIRIS [Suspect]
     Active Substance: ECULIZUMAB
     Indication: OFF LABEL USE

REACTIONS (2)
  - Influenza [Recovered/Resolved]
  - Off label use [Not Recovered/Not Resolved]

NARRATIVE: CASE EVENT DATE: 20171229
